FAERS Safety Report 8396552 (Version 3)
Quarter: 2012Q4

REPORT INFORMATION
  Report Type: 
  Country: MX (occurrence: MX)
  Receive Date: 20120208
  Receipt Date: 20121015
  Transmission Date: 20130627
  Serious: Yes (Other)
  Sender: FDA-Public Use
  Company Number: PHHY2012MX008596

PATIENT
  Age: 67 Year
  Sex: Female

DRUGS (13)
  1. EXFORGE [Suspect]
     Indication: HYPERTENSION
     Dosage: 1 tablet (160/5mg) daily
     Dates: start: 201110
  2. VITAMIN C [Concomitant]
     Indication: GLUCOSE TOLERANCE IMPAIRED
     Dosage: 1 DF per day
     Dates: start: 201101
  3. FOLIC ACID [Concomitant]
     Indication: GLUCOSE TOLERANCE IMPAIRED
     Dosage: 1 tablet per day
     Dates: start: 201101
  4. METFORMIN [Concomitant]
     Indication: GLUCOSE TOLERANCE IMPAIRED
     Dosage: 1 tablet per day
     Dates: start: 201101
  5. CALCITROL [Concomitant]
     Indication: OSTEOARTHRITIS
     Dosage: 1 tablet per day
     Dates: start: 201108
  6. METOPROLOL [Concomitant]
     Indication: HYPERTENSION
     Dosage: 1 tablet per day
     Dates: start: 201101
  7. HYDROCHLOROTHIAZIDE [Concomitant]
     Indication: HYPERTENSION
     Dosage: 1 tablet per day
     Dates: start: 201112
  8. RIVOTRIL [Concomitant]
     Indication: INSOMNIA
     Dosage: 10 drops every 3 days
  9. MONTELUKAST [Concomitant]
     Indication: ASTHMA
     Dosage: 1 tablet per day
     Dates: start: 200601
  10. CELECOXIB [Concomitant]
     Indication: BONE PAIN
     Dosage: 1 tablet per day
     Dates: start: 201110
  11. MODIODAL [Concomitant]
     Dosage: 1 DF, UNK
     Dates: start: 20120912
  12. EUTIROX [Concomitant]
     Dosage: 0.5 DF, UNK
  13. SPIRIVA [Concomitant]
     Dosage: 2 DF, UNK

REACTIONS (4)
  - Foot deformity [Recovering/Resolving]
  - Memory impairment [Not Recovered/Not Resolved]
  - Bronchitis [Recovered/Resolved]
  - Blood pressure decreased [Recovered/Resolved]
